FAERS Safety Report 21296967 (Version 1)
Quarter: 2022Q3

REPORT INFORMATION
  Report Type: Report from Study
  Country: US (occurrence: US)
  Receive Date: 20220906
  Receipt Date: 20220906
  Transmission Date: 20221027
  Serious: Yes (Other)
  Sender: FDA-Public Use
  Company Number: US-NOVARTISPH-NVSC2022US195563

PATIENT
  Age: 31 Year
  Sex: Female

DRUGS (1)
  1. KESIMPTA [Suspect]
     Active Substance: OFATUMUMAB
     Indication: Product used for unknown indication
     Dosage: 20 MG, QMO
     Route: 058
     Dates: start: 20211031

REACTIONS (13)
  - Syncope [Unknown]
  - Dizziness [Unknown]
  - Respiratory tract infection viral [Unknown]
  - Muscular weakness [Unknown]
  - Chest discomfort [Unknown]
  - Aphonia [Unknown]
  - Wheezing [Unknown]
  - Somnolence [Unknown]
  - Paraesthesia [Unknown]
  - Muscle spasms [Unknown]
  - Head discomfort [Unknown]
  - Burning sensation [Unknown]
  - Ill-defined disorder [Unknown]

NARRATIVE: CASE EVENT DATE: 20220828
